FAERS Safety Report 21620331 (Version 3)
Quarter: 2022Q4

REPORT INFORMATION
  Report Type: Report from Study
  Country: US (occurrence: US)
  Receive Date: 20221121
  Receipt Date: 20221124
  Transmission Date: 20230113
  Serious: Yes (Other)
  Sender: FDA-Public Use
  Company Number: US-SANOFI-01369452

PATIENT
  Age: 42 Year
  Sex: Female

DRUGS (1)
  1. DUPILUMAB [Suspect]
     Active Substance: DUPILUMAB
     Indication: Eosinophilic oesophagitis
     Dosage: 300 MG, QW
     Route: 058
     Dates: start: 20221112, end: 202211

REACTIONS (3)
  - Foreign body in throat [Recovered/Resolved]
  - Regurgitation [Unknown]
  - Dysphagia [Unknown]

NARRATIVE: CASE EVENT DATE: 20221115
